FAERS Safety Report 9689033 (Version 1)
Quarter: 2013Q4

REPORT INFORMATION
  Report Type: Spontaneous
  Country: SE (occurrence: SE)
  Receive Date: 20131114
  Receipt Date: 20131114
  Transmission Date: 20140711
  Serious: Yes (Hospitalization)
  Sender: FDA-Public Use
  Company Number: PHHY2013SE126684

PATIENT
  Age: 69 Year
  Sex: Male
  Weight: 76 kg

DRUGS (4)
  1. ATORVASTATIN [Suspect]
     Indication: BLOOD CHOLESTEROL INCREASED
     Dosage: 20 MG, QD
     Route: 048
     Dates: start: 20130914, end: 20130915
  2. TRIATEC [Concomitant]
     Indication: MYOCARDIAL INFARCTION
     Dates: start: 2003
  3. METFORMIN [Concomitant]
     Indication: DIABETES MELLITUS
     Route: 048
     Dates: start: 2001
  4. MINIDIAB [Concomitant]
     Indication: DIABETES MELLITUS
     Route: 048
     Dates: start: 2001

REACTIONS (5)
  - Hyperhidrosis [Recovered/Resolved]
  - Somnolence [Recovered/Resolved]
  - Syncope [Recovered/Resolved]
  - Nausea [Recovered/Resolved]
  - Vomiting [Recovered/Resolved]
